FAERS Safety Report 9461512 (Version 2)
Quarter: 2013Q3

REPORT INFORMATION
  Report Type: Report from Study
  Country: NL (occurrence: NL)
  Receive Date: 20130816
  Receipt Date: 20130902
  Transmission Date: 20140515
  Serious: Yes (Hospitalization, Other)
  Sender: FDA-Public Use
  Company Number: PHHY2012NL049164

PATIENT
  Age: 62 Year
  Sex: Male

DRUGS (22)
  1. ZOMETA [Suspect]
     Dosage: 4 MG, PER 28 DAYS (IV IN 18 MINUTES)
     Route: 042
     Dates: start: 20121004
  2. ZOMETA [Suspect]
     Dosage: 4 MG, PER 28 DAYS (IV IN 18 MINUTES)
     Route: 042
     Dates: start: 20121101
  3. ZOMETA [Suspect]
     Dosage: 4 MG, PER 28 DAYS (IV IN 18 MINUTES)
     Route: 042
     Dates: start: 20121129
  4. ZOMETA [Suspect]
     Dosage: 4 MG, EVERY 4 WEEKS
     Route: 042
     Dates: start: 20130524
  5. ZOMETA [Suspect]
     Dosage: 4 MG, EVERY 4 WEEKS
     Route: 042
     Dates: start: 20130621
  6. ZOMETA [Suspect]
     Dosage: 4 MG, PER 4 WEEKS
     Route: 042
     Dates: start: 20130718
  7. CALCICHEW [Concomitant]
  8. ZOLADEX [Concomitant]
  9. METFORMINE [Concomitant]
     Dosage: 850 MG, ONCE DAILY
  10. TOLBUTAMIDE [Concomitant]
     Dosage: 500 MG, TID
  11. SIMVASTATIN [Concomitant]
     Dosage: 20 MG ONCE DAILY
  12. PREDNISONE [Concomitant]
     Dosage: 5 MG, BID
  13. LOSARTAN POTASSIUM [Concomitant]
     Dosage: 50 MG ONCE DAILY
  14. PARACETAMOL [Concomitant]
  15. OXYNORM [Concomitant]
  16. OXYCONTIN [Concomitant]
  17. ZOMETA [Suspect]
     Indication: PROSTATE CANCER METASTATIC
     Dosage: 4 MG, 1X PER 28 DAYS
     Route: 042
  18. ZOMETA [Suspect]
     Dosage: 4 MG, EVERY 4 WEEKS
     Route: 042
     Dates: start: 20110120
  19. ZOMETA [Suspect]
     Dosage: 4 MG, PER 28 DAYS
     Route: 042
     Dates: start: 20120120
  20. ZOMETA [Suspect]
     Dosage: 4 MG, PER 28 DAYS
     Route: 042
     Dates: start: 20120510
  21. ZOMETA [Suspect]
     Dosage: 4 MG, PER 28 DAYS
     Route: 042
     Dates: start: 20120608
  22. ZOMETA [Suspect]
     Dosage: 4 MG, PER 28 DAYS (IV IN 18 MINUTES)
     Route: 042
     Dates: start: 20120903

REACTIONS (4)
  - Terminal state [Unknown]
  - General physical health deterioration [Unknown]
  - Pain [Not Recovered/Not Resolved]
  - Back pain [Not Recovered/Not Resolved]
